FAERS Safety Report 8337334-4 (Version None)
Quarter: 2012Q2

REPORT INFORMATION
  Report Type: 
  Country: None (occurrence: None)
  Receive Date: 20120504
  Receipt Date: 20120503
  Transmission Date: 20120825
  Serious: Yes (Hospitalization)
  Sender: FDA-Public Use
  Company Number: SE-ROCHE-1058972

PATIENT
  Age: 50 Year
  Sex: Female

DRUGS (5)
  1. ACETYLCYSTEINE [Suspect]
     Indication: COUGH
     Route: 048
     Dates: start: 20120330, end: 20120330
  2. RAMIPRIL [Suspect]
     Indication: PRODUCT USED FOR UNKNOWN INDICATION
  3. LEVOTHYROXINE SODIUM [Concomitant]
  4. EMCONCOR CHF [Concomitant]
  5. XELODA [Suspect]
     Indication: BREAST CANCER
     Route: 048
     Dates: start: 20120213

REACTIONS (2)
  - ANGIOEDEMA [None]
  - LIP SWELLING [None]
